FAERS Safety Report 6177076-7 (Version None)
Quarter: 2009Q2

REPORT INFORMATION
  Report Type: 
  Country: None (occurrence: None)
  Receive Date: 20090430
  Receipt Date: 20090430
  Transmission Date: 20091009
  Serious: Yes (Hospitalization)
  Sender: FDA-Public Use
  Company Number: None

PATIENT
  Sex: Female
  Weight: 16.2 kg

DRUGS (4)
  1. CYTARABINE [Suspect]
     Dosage: 9065 MG
     Dates: start: 20090304, end: 20090310
  2. ETOPOSIDE [Suspect]
     Dosage: 600 MG
     Dates: end: 20090309
  3. G-CSF (FILGRASTIM, AMGEN) [Suspect]
     Dosage: 630 MG
     Dates: end: 20090318
  4. RITUXIMAB (MOAB C2B8 ANTI CD20, CHIMERIC) [Suspect]
     Dosage: 550 MG
     Dates: end: 20090407

REACTIONS (1)
  - CLOSTRIDIAL INFECTION [None]
